FAERS Safety Report 7296036-6 (Version None)
Quarter: 2011Q1

REPORT INFORMATION
  Report Type: 
  Country: None (occurrence: None)
  Receive Date: 20110216
  Receipt Date: 20101208
  Transmission Date: 20110831
  Serious: No
  Sender: FDA-Public Use
  Company Number: US-ABBOTT-10P-163-0690190-00

PATIENT
  Sex: Male
  Weight: 65.83 kg

DRUGS (2)
  1. SIMCOR [Suspect]
     Indication: BLOOD CHOLESTEROL ABNORMAL
  2. SIMCOR [Suspect]
     Indication: LOW DENSITY LIPOPROTEIN
     Dosage: DAILY AT BEDTIME
     Dates: start: 20101103, end: 20101117

REACTIONS (2)
  - DIZZINESS [None]
  - HYPERTENSION [None]
